FAERS Safety Report 9388921 (Version 3)
Quarter: 2013Q3

REPORT INFORMATION
  Report Type: Spontaneous
  Country: US (occurrence: US)
  Receive Date: 20130708
  Receipt Date: 20130827
  Transmission Date: 20140515
  Serious: Yes (Death, Hospitalization)
  Sender: FDA-Public Use
  Company Number: US-B.I. PHARMACEUTICALS,INC./RIDGEFIELD-2013-BI-19223BP

PATIENT
  Sex: Female

DRUGS (12)
  1. COMBIVENT [Suspect]
     Indication: CHRONIC OBSTRUCTIVE PULMONARY DISEASE
     Dosage: STRENGTH: 18 MCG / 103 MCG; DAILY DOSE: 144 MCG/824 MCG
     Route: 055
     Dates: start: 20120810, end: 201210
  2. LOVENOX [Concomitant]
  3. LORAZEPAM [Concomitant]
  4. DUO NEBS [Concomitant]
  5. ZOFRAN [Concomitant]
  6. GABAPENTIN [Concomitant]
  7. METOPROLOL [Concomitant]
  8. COMPAZINE [Concomitant]
  9. LEVOTHYROXINE [Concomitant]
  10. DILAUDID [Concomitant]
  11. ZOLPIDEM [Concomitant]
  12. FENTANYL [Concomitant]

REACTIONS (3)
  - Small cell lung cancer extensive stage [Fatal]
  - Swelling face [Unknown]
  - Vein disorder [Unknown]
